FAERS Safety Report 16361376 (Version 1)
Quarter: 2019Q3

REPORT INFORMATION
  Report Type: Spontaneous
  Country: US (occurrence: US)
  Receive Date: 20190524
  Receipt Date: 20190524
  Transmission Date: 20191004
  Serious: No
  Sender: FDA-Public Use
  Company Number: None

PATIENT
  Age: 59 Year
  Sex: Male
  Weight: 109.5 kg

DRUGS (3)
  1. LIDOCAINE INFUSION [Suspect]
     Active Substance: LIDOCAINE HYDROCHLORIDE
     Indication: POSTOPERATIVE ANALGESIA
     Dosage: ?          OTHER FREQUENCY:3.6MG/MIN;?
     Route: 041
     Dates: start: 20180405, end: 20180406
  2. ACETAMINOPHEN. [Concomitant]
     Active Substance: ACETAMINOPHEN
     Dates: start: 20180405, end: 20180406
  3. MORPHINE SULFATE PCA [Concomitant]
     Dates: start: 20180405, end: 20180406

REACTIONS (3)
  - Visual impairment [None]
  - Hypoaesthesia oral [None]
  - Dysgeusia [None]

NARRATIVE: CASE EVENT DATE: 20180405
